FAERS Safety Report 5420979-9 (Version None)
Quarter: 2007Q3

REPORT INFORMATION
  Report Type: 
  Country: None (occurrence: None)
  Receive Date: 20070821
  Receipt Date: 20070810
  Transmission Date: 20080115
  Serious: Yes (Hospitalization)
  Sender: FDA-Public Use
  Company Number: CH-MERCK-0708CHE00010

PATIENT
  Age: 85 Year
  Sex: Female
  Weight: 57 kg

DRUGS (11)
  1. NOROXIN [Suspect]
     Indication: URINARY TRACT INFECTION
     Route: 048
     Dates: start: 20070426, end: 20070427
  2. BACTRIM [Suspect]
     Indication: URINARY TRACT INFECTION
     Route: 048
     Dates: start: 20070430, end: 20070504
  3. AUGMENTIN '125' [Suspect]
     Indication: URINARY TRACT INFECTION
     Route: 048
     Dates: start: 20070427, end: 20070430
  4. MAXIPIME [Suspect]
     Indication: URINARY TRACT INFECTION
     Route: 048
     Dates: start: 20070504, end: 20070510
  5. KEPPRA [Concomitant]
     Indication: EPILEPSY
     Route: 048
     Dates: start: 20070427
  6. NEXIUM [Concomitant]
     Indication: DUODENAL ULCER HAEMORRHAGE
     Route: 048
     Dates: start: 20070322
  7. DAFALGAN [Concomitant]
     Indication: PAIN
     Route: 048
     Dates: start: 20070526
  8. ALDACTONE [Concomitant]
     Indication: CARDIAC FAILURE CONGESTIVE
     Route: 048
     Dates: start: 20070419
  9. MOVICOL [Concomitant]
     Route: 065
  10. FLAGYL [Concomitant]
     Indication: URINARY TRACT INFECTION
     Route: 065
     Dates: start: 20070504, end: 20070510
  11. DEPAKENE [Concomitant]
     Route: 048
     Dates: start: 20040101, end: 20070424

REACTIONS (2)
  - HENOCH-SCHONLEIN PURPURA [None]
  - PRURITUS [None]
